FAERS Safety Report 5370076-6 (Version None)
Quarter: 2007Q2

REPORT INFORMATION
  Report Type: 
  Country: None (occurrence: None)
  Receive Date: 20070626
  Receipt Date: 20070618
  Transmission Date: 20071010
  Serious: Yes (Hospitalization)
  Sender: FDA-Public Use
  Company Number: NO-BAXTER-2007BH003854

PATIENT
  Age: 60 Year
  Sex: Female
  Weight: 58 kg

DRUGS (14)
  1. EXTRANEAL [Suspect]
     Indication: RENAL FAILURE CHRONIC
     Route: 033
     Dates: start: 20070214
  2. PHYSIOSOL IN PLASTIC CONTAINER [Suspect]
     Indication: RENAL FAILURE CHRONIC
     Route: 033
     Dates: start: 20070214
  3. NUTRINEAL [Suspect]
     Indication: RENAL FAILURE CHRONIC
     Route: 033
     Dates: start: 20070214
  4. ATARAX [Concomitant]
  5. DIURAL [Concomitant]
  6. FERRO-RETARD [Concomitant]
  7. TEGRETOL [Concomitant]
  8. FOLAT [Concomitant]
  9. TITRALAC [Concomitant]
  10. VALLERGAN [Concomitant]
  11. MINIPARA [Concomitant]
  12. REMERON [Concomitant]
  13. VENTOLIN [Concomitant]
     Route: 055
  14. ATROVENT [Concomitant]
     Route: 055

REACTIONS (2)
  - PERITONITIS [None]
  - PYREXIA [None]
